FAERS Safety Report 8571948-1 (Version None)
Quarter: 2012Q3

REPORT INFORMATION
  Report Type: 
  Country: None (occurrence: None)
  Receive Date: 20120724
  Receipt Date: 20120709
  Transmission Date: 20120928
  Serious: Yes (Other)
  Sender: FDA-Public Use
  Company Number: 2012P1048645

PATIENT
  Age: 52 Year
  Sex: Female
  Weight: 84.8226 kg

DRUGS (10)
  1. DEXILANT [Concomitant]
  2. MULTI-VITAMIN [Concomitant]
  3. FENTANYL-100 [Suspect]
     Indication: OSTEOARTHRITIS
     Dosage: 1 PATCH;Q72H;TDER
     Route: 062
     Dates: start: 19980101
  4. FENTANYL-100 [Suspect]
     Indication: NEUROPATHY PERIPHERAL
     Dosage: 1 PATCH;Q72H;TDER
     Route: 062
     Dates: start: 19980101
  5. FENTANYL-100 [Suspect]
     Indication: FIBROMYALGIA
     Dosage: 1 PATCH;Q72H;TDER
     Route: 062
     Dates: start: 19980101
  6. SYNTHROID [Concomitant]
  7. PROPRANOLOL [Concomitant]
  8. FISH OILS [Concomitant]
  9. ACAI [Concomitant]
  10. PROBIOTICS [Concomitant]

REACTIONS (6)
  - NEUROPATHY PERIPHERAL [None]
  - VOMITING [None]
  - DRUG INEFFECTIVE [None]
  - PRODUCT ADHESION ISSUE [None]
  - NAUSEA [None]
  - WRONG TECHNIQUE IN DRUG USAGE PROCESS [None]
